FAERS Safety Report 10043685 (Version 1)
Quarter: 2014Q1

REPORT INFORMATION
  Report Type: Spontaneous
  Country: US (occurrence: None)
  Receive Date: 20140327
  Receipt Date: 20140327
  Transmission Date: 20141002
  Serious: Yes (Other)
  Sender: FDA-Public Use
  Company Number: None

PATIENT
  Age: 60 Year
  Sex: Male
  Weight: 83.1 kg

DRUGS (1)
  1. SIMVASTATIN [Suspect]
     Indication: HYPERLIPIDAEMIA
     Dosage: MG
     Route: 048
     Dates: start: 20130708, end: 20131025

REACTIONS (4)
  - Dyspnoea [None]
  - Dysphagia [None]
  - Myasthenia gravis [None]
  - Condition aggravated [None]
